FAERS Safety Report 22308524 (Version 2)
Quarter: 2023Q2

REPORT INFORMATION
  Report Type: Report from Study
  Country: US (occurrence: US)
  Receive Date: 20230511
  Receipt Date: 20230606
  Transmission Date: 20230721
  Serious: No
  Sender: FDA-Public Use
  Company Number: US-002147023-NVSC2023US105235

PATIENT
  Age: 55 Year
  Sex: Female

DRUGS (1)
  1. KESIMPTA [Suspect]
     Active Substance: OFATUMUMAB
     Indication: Product used for unknown indication
     Dosage: UNK
     Route: 065
     Dates: start: 20230427

REACTIONS (5)
  - Pain [Unknown]
  - Pain in extremity [Unknown]
  - Rash [Unknown]
  - Insomnia [Unknown]
  - Sciatica [Unknown]

NARRATIVE: CASE EVENT DATE: 20230427
